FAERS Safety Report 6620978-5 (Version None)
Quarter: 2010Q1

REPORT INFORMATION
  Report Type: 
  Country: None (occurrence: None)
  Receive Date: 20100309
  Receipt Date: 20100223
  Transmission Date: 20100710
  Serious: Yes (Other)
  Sender: FDA-Public Use
  Company Number: PHHY2010US10470

PATIENT
  Age: 88 Year
  Sex: Male

DRUGS (3)
  1. PAMIDRONATE DISODIUM [Suspect]
     Indication: METASTASES TO BONE
     Dosage: UNK
  2. CORTICOSTEROIDS [Concomitant]
  3. KETOCONAZOLE [Concomitant]

REACTIONS (7)
  - ACTINOMYCOSIS [None]
  - FRACTURE DEBRIDEMENT [None]
  - INFLAMMATION [None]
  - INTERNAL FIXATION OF FRACTURE [None]
  - JAW FRACTURE [None]
  - OSTEOMYELITIS [None]
  - OSTEONECROSIS [None]
